FAERS Safety Report 9501405 (Version 1)
Quarter: 2013Q1

REPORT INFORMATION
  Report Type: Spontaneous
  Country: US (occurrence: None)
  Receive Date: 20130107
  Receipt Date: 20130107
  Transmission Date: 20140127
  Serious: No
  Sender: FDA-Public Use
  Company Number: PHEH2011US03174

PATIENT
  Age: 47 Year
  Sex: Female
  Weight: 68 kg

DRUGS (6)
  1. GILENYA (FTY) CAPSULE, 0.5MG [Suspect]
     Route: 048
  2. NEURONTIN (GABAPENTIN) [Concomitant]
  3. FAMPRIDINE (FAMPRIDINE) [Concomitant]
  4. VITAMIN D (ERGOCALCIFEROL) [Concomitant]
  5. MULTIVITAMIN (VITAMINS NOS) [Concomitant]
  6. BACLOFEN (BACLOFEN) [Concomitant]

REACTIONS (4)
  - Photophobia [None]
  - Dry eye [None]
  - Lacrimation increased [None]
  - Visual impairment [None]
